FAERS Safety Report 19079410 (Version 5)
Quarter: 2021Q3

REPORT INFORMATION
  Report Type: Spontaneous
  Country: JP (occurrence: JP)
  Receive Date: 20210331
  Receipt Date: 20210803
  Transmission Date: 20211014
  Serious: Yes (Death, Hospitalization, Disabling, Other)
  Sender: FDA-Public Use
  Company Number: JP-FERRINGPH-2021FE02045

PATIENT
  Age: 82 Year
  Sex: Male
  Weight: 45 kg

DRUGS (12)
  1. ADONA (AC?17) [Concomitant]
     Active Substance: CARBAZOCHROME SODIUM SULFONATE
     Indication: HAEMATURIA
     Dosage: 10 MG, 3 TIMES DAILY
     Route: 048
     Dates: start: 20210316, end: 20210320
  2. SOLITA?T3 [Concomitant]
     Active Substance: POTASSIUM CHLORIDE\SODIUM CHLORIDE\SODIUM LACTATE
     Indication: EATING DISORDER SYMPTOM
     Dosage: 500 ML, DAILY
     Route: 042
     Dates: start: 20210316, end: 20210321
  3. GONAX [Suspect]
     Active Substance: DEGARELIX
     Dosage: 240 MG, ONCE/SINGLE
     Route: 058
     Dates: start: 20200311
  4. ADONA (AC?17) [Concomitant]
     Active Substance: CARBAZOCHROME SODIUM SULFONATE
     Dosage: 25 MG, 2 TIMES DAILY
     Route: 042
     Dates: start: 20210320
  5. GONAX [Suspect]
     Active Substance: DEGARELIX
     Indication: PROSTATE CANCER
     Dosage: 80 MG, MONTHLY
     Route: 058
     Dates: start: 20200408, end: 20210303
  6. LACTEC G [Concomitant]
     Active Substance: CALCIUM CHLORIDE\POTASSIUM CHLORIDE\SODIUM CHLORIDE\SODIUM LACTATE\SORBITOL
     Indication: EATING DISORDER SYMPTOM
     Dosage: 500 ML, DAILY
     Route: 042
     Dates: start: 20210316, end: 20210321
  7. CASODEX [Suspect]
     Active Substance: BICALUTAMIDE
     Indication: PROSTATE CANCER
     Dosage: 80 MG, DAILY
     Route: 048
     Dates: start: 20200311, end: 20210318
  8. TRANSAMIN [Concomitant]
     Active Substance: TRANEXAMIC ACID
     Indication: HAEMATURIA
     Dosage: 250 MG, DAILY
     Route: 048
     Dates: start: 20210316, end: 20210320
  9. XTANDI [Suspect]
     Active Substance: ENZALUTAMIDE
     Indication: PRODUCT USED FOR UNKNOWN INDICATION
     Dosage: 160 MG, DAILY
     Route: 048
     Dates: start: 20210319, end: 20210320
  10. IRON OXIDES [Concomitant]
     Active Substance: FERRIC OXIDE RED
     Route: 065
  11. TRANSAMIN [Concomitant]
     Active Substance: TRANEXAMIC ACID
     Dosage: 250 MG, DAILY
     Route: 042
     Dates: start: 20210320
  12. FUROSEMID 1A PHARM [Concomitant]
     Active Substance: FUROSEMIDE
     Route: 065

REACTIONS (5)
  - Eating disorder symptom [Unknown]
  - Urine output decreased [Recovering/Resolving]
  - Haematuria [Not Recovered/Not Resolved]
  - Urinary retention [Unknown]
  - Rectal cancer [Not Recovered/Not Resolved]

NARRATIVE: CASE EVENT DATE: 20200411
